FAERS Safety Report 7540147-4 (Version None)
Quarter: 2011Q2

REPORT INFORMATION
  Report Type: 
  Country: None (occurrence: None)
  Receive Date: 20110610
  Receipt Date: 20110603
  Transmission Date: 20111010
  Serious: Yes (Hospitalization, Other)
  Sender: FDA-Public Use
  Company Number: DE-B.I. PHARMACEUTICALS,INC./RIDGEFIELD-2011-BP-14657BP

PATIENT
  Age: 72 Year
  Sex: Female
  Weight: 75 kg

DRUGS (5)
  1. VOLTAFLEX [Concomitant]
     Indication: OSTEOARTHRITIS
     Dates: start: 20090501
  2. RAMIPRIL [Concomitant]
     Indication: HYPERTENSION
     Dosage: 2.5 MG
     Dates: start: 20091117
  3. PRAMIPEXOLE DIHYDROCHLORIDE [Suspect]
     Indication: RESTLESS LEGS SYNDROME
     Dosage: 0.5 MG
     Dates: start: 20091201
  4. JODTHYROX [Concomitant]
     Indication: GOITRE
     Dates: start: 19990101
  5. IBUPROFEN [Concomitant]
     Indication: OSTEOARTHRITIS
     Dosage: 400 MG
     Dates: start: 20091127

REACTIONS (1)
  - BRADYARRHYTHMIA [None]
